FAERS Safety Report 9307665 (Version 1)
Quarter: 2013Q2

REPORT INFORMATION
  Report Type: Spontaneous
  Country: US (occurrence: US)
  Receive Date: 20130524
  Receipt Date: 20130524
  Transmission Date: 20140414
  Serious: No
  Sender: FDA-Public Use
  Company Number: US-PFIZER INC-2013154470

PATIENT
  Age: 75 Year
  Sex: Male
  Weight: 86.17 kg

DRUGS (3)
  1. TOVIAZ [Suspect]
     Indication: URINARY INCONTINENCE
     Dosage: 4 MG, 1X/DAY
     Route: 048
     Dates: start: 201305, end: 201305
  2. AMLODIPINE BESILATE [Concomitant]
     Indication: HYPERTENSION
     Dosage: 10 MG, 1X/DAY
  3. DOXAZOSIN [Concomitant]
     Dosage: 2 MG, 1X/DAY

REACTIONS (3)
  - Joint swelling [Not Recovered/Not Resolved]
  - Rash [Not Recovered/Not Resolved]
  - Pruritus [Recovered/Resolved]
